FAERS Safety Report 6517080-X (Version None)
Quarter: 2009Q4

REPORT INFORMATION
  Report Type: 
  Country: None (occurrence: None)
  Receive Date: 20091223
  Receipt Date: 20091222
  Transmission Date: 20100525
  Serious: Yes (Life-Threatening, Hospitalization, Disabling, Other)
  Sender: FDA-Public Use
  Company Number: A0836515A

PATIENT
  Age: 24 Year
  Sex: Female

DRUGS (2)
  1. PAXIL [Suspect]
     Indication: PANIC ATTACK
     Dosage: 60MG UNKNOWN
     Route: 048
  2. ATENOLOL [Concomitant]
     Indication: TACHYCARDIA
     Dosage: 25MG PER DAY

REACTIONS (6)
  - AGGRESSION [None]
  - AGITATION [None]
  - CONVULSION [None]
  - MIGRAINE [None]
  - THINKING ABNORMAL [None]
  - TREMOR [None]
